FAERS Safety Report 9161053 (Version 2)
Quarter: 2013Q3

REPORT INFORMATION
  Report Type: Spontaneous
  Country: US (occurrence: US)
  Receive Date: 20130313
  Receipt Date: 20130708
  Transmission Date: 20140515
  Serious: Yes (Other)
  Sender: FDA-Public Use
  Company Number: US-PFIZER INC-2013084001

PATIENT
  Age: 60 Year
  Sex: Female
  Weight: 127.89 kg

DRUGS (10)
  1. LYRICA [Suspect]
     Indication: FIBROMYALGIA
     Dosage: ONE 75MG CAPSULE IN THE MORNING + TWO 75MG CAPSULES AT NIGHT
     Route: 048
     Dates: start: 2007
  2. LYRICA [Suspect]
     Indication: DIABETIC NEUROPATHY
  3. IBUPROFEN [Concomitant]
     Dosage: UNK
  4. GABAPENTIN [Concomitant]
     Dosage: UNK
  5. ATENOLOL [Concomitant]
     Dosage: 100 MG, 1X/DAY
  6. SIMVASTATIN [Concomitant]
     Dosage: 40 MG, 1X/DAY
  7. GLIPIZIDE [Concomitant]
     Dosage: 5 MG, 1X/DAY
  8. AMLODIPINE [Concomitant]
     Dosage: 5 MG, 1X/DAY
  9. HYDROCHLOROTHIAZIDE [Concomitant]
     Dosage: 25 MG, UNK
  10. METFORMIN [Concomitant]
     Indication: DIABETES MELLITUS
     Dosage: 200 MG, 2X/DAY

REACTIONS (10)
  - Road traffic accident [Unknown]
  - Back injury [Unknown]
  - Wrist fracture [Unknown]
  - Joint injury [Unknown]
  - Weight increased [Unknown]
  - Malaise [Unknown]
  - Drug effect incomplete [Unknown]
  - Pain [Unknown]
  - Pain in extremity [Unknown]
  - Arthralgia [Unknown]
